FAERS Safety Report 4280749-4 (Version None)
Quarter: 2004Q1

REPORT INFORMATION
  Report Type: 
  Country: None (occurrence: None)
  Receive Date: 20040127
  Receipt Date: 20040121
  Transmission Date: 20041129
  Serious: Yes (Other)
  Sender: FDA-Public Use
  Company Number: 2003183584DE

PATIENT
  Age: 48 Year
  Sex: Male

DRUGS (3)
  1. VANTIN [Suspect]
     Indication: PNEUMONIA
     Dosage: ORAL
     Route: 048
     Dates: start: 20030301, end: 20030401
  2. LERCANIDIPINE [Suspect]
     Indication: PNEUMONIA
     Dosage: 10 MG, DAILY, ORAL
     Route: 048
     Dates: start: 20000101, end: 20030409
  3. ACETYLSALICYLIC ACID SRT [Suspect]
     Indication: PNEUMONIA
     Dosage: 100 MG, DAILY, ORAL
     Route: 048
     Dates: start: 20021001, end: 20030412

REACTIONS (3)
  - EPSTEIN-BARR VIRUS INFECTION [None]
  - HEPATITIS ACUTE [None]
  - MYCOPLASMA INFECTION [None]
